FAERS Safety Report 5650053-8 (Version None)
Quarter: 2008Q1

REPORT INFORMATION
  Report Type: 
  Country: None (occurrence: None)
  Receive Date: 20080303
  Receipt Date: 20080229
  Transmission Date: 20080703
  Serious: Yes (Other)
  Sender: FDA-Public Use
  Company Number: 023120

PATIENT
  Age: 34 Year
  Sex: Female
  Weight: 108.8 kg

DRUGS (9)
  1. JOLESSA(LEVONORGESTREL, ETHINYLESTRADIOL) TABLET, 0.15/0.03MG [Suspect]
     Indication: MENSTRUAL CYCLE MANAGEMENT
     Dosage: 1 TABLET, QD, ORAL
     Route: 048
     Dates: start: 20070101
  2. JOLESSA(LEVONORGESTREL, ETHINYLESTRADIOL) TABLET, 0.15/0.03MG [Suspect]
     Indication: ORAL CONTRACEPTION
     Dosage: 1 TABLET, QD, ORAL
     Route: 048
     Dates: start: 20070101
  3. ABILIFY [Concomitant]
  4. CONCERTA [Concomitant]
  5. NALTREXONE (NALTREXONE) [Concomitant]
  6. OXYTROL [Concomitant]
  7. PENICILLIN VK [Concomitant]
  8. PROZAC [Concomitant]
  9. RITALIN [Concomitant]

REACTIONS (9)
  - ACTIVITIES OF DAILY LIVING IMPAIRED [None]
  - AMENORRHOEA [None]
  - FATIGUE [None]
  - MENSTRUATION DELAYED [None]
  - POOR PERSONAL HYGIENE [None]
  - PREMENSTRUAL SYNDROME [None]
  - SCRATCH [None]
  - SELF INJURIOUS BEHAVIOUR [None]
  - WEIGHT INCREASED [None]
